FAERS Safety Report 9421861 (Version 1)
Quarter: 2013Q3

REPORT INFORMATION
  Report Type: Report from Study
  Country: US (occurrence: US)
  Receive Date: 20130726
  Receipt Date: 20130726
  Transmission Date: 20140515
  Serious: Yes (Other)
  Sender: FDA-Public Use
  Company Number: US-ROCHE-1247966

PATIENT
  Age: 56 Year
  Sex: Male

DRUGS (30)
  1. AVASTIN [Suspect]
     Indication: PRODUCT USED FOR UNKNOWN INDICATION
     Route: 050
  2. LANTUS [Concomitant]
     Route: 058
     Dates: start: 20110509
  3. ASPIRIN [Concomitant]
     Route: 048
     Dates: start: 20110509
  4. NEPHROCAPS [Concomitant]
     Route: 048
     Dates: start: 20110509
  5. LABETALOL HCL [Concomitant]
     Route: 048
     Dates: start: 20110509, end: 20110907
  6. LABETALOL HCL [Concomitant]
     Route: 048
     Dates: start: 20110907, end: 20120709
  7. DILTIAZEM ER [Concomitant]
     Route: 048
     Dates: start: 20130610
  8. NEXIUM [Concomitant]
     Route: 048
     Dates: start: 20130610
  9. SODIUM BICARBONATE [Concomitant]
     Route: 065
     Dates: start: 20130610
  10. CELLCEPT [Concomitant]
     Dosage: 3/3 12 HOURS
     Route: 065
  11. BACTRIM [Concomitant]
     Route: 065
     Dates: start: 20130610
  12. PROGRAF [Concomitant]
     Route: 048
     Dates: start: 20130610
  13. LISINOPRIL [Concomitant]
     Route: 048
     Dates: start: 20110509, end: 20110907
  14. SODIUM BICARBONATE [Concomitant]
     Route: 048
     Dates: start: 20110520, end: 20111114
  15. CALCITRIOL [Concomitant]
     Route: 048
     Dates: start: 20110509, end: 20111114
  16. MINOXIDIL [Concomitant]
     Route: 048
     Dates: start: 20110907, end: 20111114
  17. RENVELA [Concomitant]
     Route: 048
     Dates: start: 20110907, end: 20111114
  18. BESIVANCE [Concomitant]
     Route: 047
     Dates: start: 20120112, end: 20120114
  19. BESIVANCE [Concomitant]
     Route: 047
     Dates: start: 20120723, end: 20120820
  20. BESIVANCE [Concomitant]
     Route: 047
     Dates: start: 20120114, end: 20120404
  21. PRED FORTE [Concomitant]
     Route: 047
     Dates: start: 20120112, end: 20120404
  22. COMBIGAN [Concomitant]
     Route: 047
     Dates: start: 20120404, end: 20120509
  23. ZOCOR [Concomitant]
     Route: 048
     Dates: start: 20110509, end: 20120709
  24. CLONIDINE HCL [Concomitant]
     Route: 048
     Dates: start: 20110509, end: 20120709
  25. AMLODIPINE BESYLATE [Concomitant]
     Route: 048
     Dates: start: 20110509, end: 20120709
  26. ROPINIROLE HYDROCHLORIDE [Concomitant]
     Route: 065
     Dates: start: 20130610
  27. FUROSEMIDE [Concomitant]
     Route: 048
     Dates: start: 20110509, end: 20130610
  28. ALKA SELTZER COUGH AND COLD (UNK INGREDIENTS) [Concomitant]
     Route: 048
     Dates: start: 20110509, end: 20130610
  29. LISINOPRIL [Concomitant]
     Route: 048
     Dates: start: 20110907, end: 20130610
  30. PREDNISONE [Concomitant]
     Route: 065

REACTIONS (13)
  - Blindness [Unknown]
  - Cystoid macular oedema [Unknown]
  - Vision blurred [Unknown]
  - Visual acuity reduced [Unknown]
  - Diabetic retinopathy [Unknown]
  - Retinal detachment [Unknown]
  - Floppy eyelid syndrome [Unknown]
  - Eye pain [Recovered/Resolved]
  - Vitreous haemorrhage [Unknown]
  - Retinal disorder [Unknown]
  - Visual acuity reduced [Unknown]
  - Retinal fibrosis [Unknown]
  - Macular fibrosis [Unknown]
